FAERS Safety Report 18527281 (Version 1)
Quarter: 2020Q4

REPORT INFORMATION
  Report Type: Spontaneous
  Country: US (occurrence: US)
  Receive Date: 20201120
  Receipt Date: 20201120
  Transmission Date: 20210114
  Serious: Yes (Hospitalization)
  Sender: FDA-Public Use
  Company Number: US-PFIZER INC-2020457407

PATIENT
  Age: 79 Year
  Sex: Female
  Weight: 61.68 kg

DRUGS (1)
  1. SUTENT [Suspect]
     Active Substance: SUNITINIB MALATE
     Indication: THYROID CANCER
     Dosage: 12.5 MG, CYCLIC (DAILY 14 DAYS OFF 7 DAYS)
     Route: 048
     Dates: start: 20201019

REACTIONS (2)
  - Off label use [Unknown]
  - COVID-19 [Unknown]

NARRATIVE: CASE EVENT DATE: 20201116
